FAERS Safety Report 7481337-9 (Version None)
Quarter: 2011Q2

REPORT INFORMATION
  Report Type: 
  Country: None (occurrence: None)
  Receive Date: 20110516
  Receipt Date: 20110505
  Transmission Date: 20111010
  Serious: Yes (Death, Other)
  Sender: FDA-Public Use
  Company Number: NO-NOVOPROD-318067

PATIENT
  Sex: Male

DRUGS (2)
  1. VICTOZA [Suspect]
     Indication: PRODUCT USED FOR UNKNOWN INDICATION
     Route: 051
     Dates: start: 20101007, end: 20101023
  2. METFORMIN HYDROCHLORIDE [Concomitant]

REACTIONS (3)
  - VOMITING [None]
  - PANCREATITIS ACUTE [None]
  - GASTROINTESTINAL PAIN [None]
